FAERS Safety Report 23989441 (Version 2)
Quarter: 2024Q3

REPORT INFORMATION
  Report Type: Spontaneous
  Country: US (occurrence: US)
  Receive Date: 20240619
  Receipt Date: 20240704
  Transmission Date: 20241016
  Serious: Yes (Hospitalization, Other)
  Sender: MEDEXUS PHARMA
  Company Number: US-MEDEXUS PHARMA, INC.-2024MED00263

PATIENT
  Age: 61 Year
  Sex: Female
  Weight: 97.506 kg

DRUGS (6)
  1. RASUVO [Suspect]
     Active Substance: METHOTREXATE SODIUM
     Indication: Rheumatoid arthritis
     Dosage: 1X/WEEK, WEDNESDAY EVENINGS ON LEGS
     Dates: start: 2019, end: 20240215
  2. RASUVO [Suspect]
     Active Substance: METHOTREXATE SODIUM
     Dosage: 1X/WEEK, WEDNESDAY EVENINGS ON LEGS
     Dates: start: 20240328
  3. ATORVASTATIN [Concomitant]
     Active Substance: ATORVASTATIN
  4. AMITRIPTYLINE [Concomitant]
     Active Substance: AMITRIPTYLINE
  5. ASPIRIN [Concomitant]
     Active Substance: ASPIRIN
  6. LISINOPRIL [Concomitant]
     Active Substance: LISINOPRIL

REACTIONS (1)
  - Rheumatoid arthritis [Recovered/Resolved]

NARRATIVE: CASE EVENT DATE: 20240307
